FAERS Safety Report 14782447 (Version 3)
Quarter: 2018Q3

REPORT INFORMATION
  Report Type: Spontaneous
  Country: US (occurrence: US)
  Receive Date: 20180420
  Receipt Date: 20180808
  Transmission Date: 20181010
  Serious: Yes (Other)
  Sender: FDA-Public Use
  Company Number: US-009507513-1804USA005891

PATIENT
  Sex: Female

DRUGS (3)
  1. SIMVASTATIN TABLETS, USP [Suspect]
     Active Substance: SIMVASTATIN
     Indication: BLOOD CHOLESTEROL INCREASED
  2. ZETIA [Suspect]
     Active Substance: EZETIMIBE
     Dosage: UNK
     Dates: start: 201804
  3. XELJANZ [Interacting]
     Active Substance: TOFACITINIB CITRATE
     Indication: BLOOD CHOLESTEROL INCREASED

REACTIONS (10)
  - Upper respiratory tract infection [Unknown]
  - Blood cholesterol abnormal [Unknown]
  - Vein rupture [Unknown]
  - Drug interaction [Unknown]
  - Cough [Unknown]
  - Urinary tract infection [Unknown]
  - Adverse drug reaction [Unknown]
  - Drug effect incomplete [Unknown]
  - Shock [Unknown]
  - Low density lipoprotein abnormal [Unknown]

NARRATIVE: CASE EVENT DATE: 2017
